FAERS Safety Report 22292650 (Version 1)
Quarter: 2023Q2

REPORT INFORMATION
  Report Type: Report from Study
  Country: CA (occurrence: CA)
  Receive Date: 20230508
  Receipt Date: 20230508
  Transmission Date: 20230721
  Serious: Yes (Other)
  Sender: FDA-Public Use
  Company Number: CA-CELLTRION INC.-2023CA009350

PATIENT

DRUGS (1)
  1. TRUXIMA [Suspect]
     Active Substance: RITUXIMAB-ABBS
     Indication: Vasculitis
     Dosage: INFUSION#1
     Route: 042
     Dates: start: 20230428

REACTIONS (3)
  - Pneumonia [Unknown]
  - Musculoskeletal chest pain [Unknown]
  - Back pain [Unknown]
